FAERS Safety Report 8176634-8 (Version None)
Quarter: 2012Q1

REPORT INFORMATION
  Report Type: 
  Country: None (occurrence: None)
  Receive Date: 20120228
  Receipt Date: 20120214
  Transmission Date: 20120608
  Serious: Yes (Other)
  Sender: FDA-Public Use
  Company Number: 1000028492

PATIENT
  Age: 24 Year
  Sex: Female

DRUGS (2)
  1. VIIBRYD [Suspect]
  2. LEXAPRO [Suspect]

REACTIONS (2)
  - SUICIDE ATTEMPT [None]
  - INTENTIONAL OVERDOSE [None]
